FAERS Safety Report 4529431-6 (Version None)
Quarter: 2004Q4

REPORT INFORMATION
  Report Type: 
  Country: None (occurrence: None)
  Receive Date: 20041216
  Receipt Date: 20041019
  Transmission Date: 20050328
  Serious: Yes (Disabling, Other)
  Sender: FDA-Public Use
  Company Number: 2004S1003130

PATIENT
  Sex: Female

DRUGS (11)
  1. ACEBUTOLOL HCL [Suspect]
     Indication: HYPERTENSION
     Dosage: 200 MG BID; ORAL
     Route: 048
     Dates: start: 20041006, end: 20041013
  2. ACEBUTOLOL HCL [Suspect]
     Indication: TACHYCARDIA
     Dosage: 200 MG BID; ORAL
     Route: 048
     Dates: start: 20041006, end: 20041013
  3. ACETAMINOPHEN AND HYDROCODONE BITARTRATE [Concomitant]
  4. BUTALBITAL ACETAMINOPHEN AND CAFFEINE [Concomitant]
  5. TIZANIDINE HCL [Concomitant]
  6. ATORVASTATIN [Concomitant]
  7. PANTOPRAZOLE [Concomitant]
  8. CLONAZEPAM [Concomitant]
  9. BACLOFEN [Concomitant]
  10. NAPROXEN [Concomitant]
  11. AMLODIPINE/BENAZEPRIL [Concomitant]

REACTIONS (5)
  - ASTHENIA [None]
  - DRUG INEFFECTIVE [None]
  - DYSGEUSIA [None]
  - HEART RATE INCREASED [None]
  - PHARMACEUTICAL PRODUCT COMPLAINT [None]
